FAERS Safety Report 24421188 (Version 1)
Quarter: 2024Q4

REPORT INFORMATION
  Report Type: Spontaneous
  Country: GB (occurrence: GB)
  Receive Date: 20241010
  Receipt Date: 20241010
  Transmission Date: 20250115
  Serious: Yes (Life-Threatening, Hospitalization)
  Sender: BOEHRINGER INGELHEIM
  Company Number: GB-BoehringerIngelheim-2024-BI-055587

PATIENT
  Age: 75 Year
  Sex: Male

DRUGS (7)
  1. EMPAGLIFLOZIN [Suspect]
     Active Substance: EMPAGLIFLOZIN
     Indication: Type 2 diabetes mellitus
     Dosage: FORM STRENGTH: 10 MILLIGRAM
  2. sacubitril 97mg/valsartan 103mg [Concomitant]
     Indication: Product used for unknown indication
     Dosage: 97MG/103MG
  3. IVABRADINE [Concomitant]
     Active Substance: IVABRADINE
     Indication: Product used for unknown indication
  4. BISOPROLOL [Concomitant]
     Active Substance: BISOPROLOL\BISOPROLOL FUMARATE
     Indication: Product used for unknown indication
  5. BUMETANIDE [Concomitant]
     Active Substance: BUMETANIDE
     Indication: Product used for unknown indication
  6. GLICLAZIDE [Concomitant]
     Active Substance: GLICLAZIDE
     Indication: Product used for unknown indication
  7. SPIRONOLACTONE [Concomitant]
     Active Substance: SPIRONOLACTONE
     Indication: Product used for unknown indication

REACTIONS (3)
  - Fournier^s gangrene [Not Recovered/Not Resolved]
  - Septic shock [Not Recovered/Not Resolved]
  - Metabolic acidosis [Recovering/Resolving]
